FAERS Safety Report 8436691-8 (Version None)
Quarter: 2012Q2

REPORT INFORMATION
  Report Type: 
  Country: None (occurrence: None)
  Receive Date: 20120614
  Receipt Date: 20120530
  Transmission Date: 20120825
  Serious: Yes (Other)
  Sender: FDA-Public Use
  Company Number: JP-SANOFI-AVENTIS-2012SA039196

PATIENT
  Age: 62 Year
  Sex: Male

DRUGS (3)
  1. AMARYL [Suspect]
     Indication: DIABETES MELLITUS
     Route: 048
  2. CARVEDILOL [Suspect]
     Route: 048
  3. LASIX [Suspect]
     Route: 048

REACTIONS (2)
  - TOXIC SKIN ERUPTION [None]
  - PIGMENTATION DISORDER [None]
